FAERS Safety Report 24233072 (Version 1)
Quarter: 2024Q3

REPORT INFORMATION
  Report Type: Spontaneous
  Country: VN (occurrence: VN)
  Receive Date: 20240821
  Receipt Date: 20240821
  Transmission Date: 20241017
  Serious: Yes (Death, Hospitalization, Other)
  Sender: SANDOZ
  Company Number: VN-002147023-NVSC2024VN166326

PATIENT
  Age: 37 Year
  Sex: Female

DRUGS (6)
  1. CYTARABINE [Suspect]
     Active Substance: CYTARABINE
     Indication: Acute myeloid leukaemia
     Dosage: UNK
     Route: 065
  2. CYTARABINE [Suspect]
     Active Substance: CYTARABINE
     Indication: Breast cancer
  3. DOCETAXEL [Suspect]
     Active Substance: DOCETAXEL\DOCETAXEL ANHYDROUS
     Indication: Breast cancer
     Dosage: UNK
     Route: 065
  4. DOXORUBICIN [Suspect]
     Active Substance: DOXORUBICIN
     Indication: Breast cancer
     Dosage: UNK
     Route: 065
  5. DOXORUBICIN [Suspect]
     Active Substance: DOXORUBICIN
     Indication: Acute myeloid leukaemia
  6. GEMCITABINE [Suspect]
     Active Substance: GEMCITABINE
     Indication: Breast cancer
     Dosage: UNK
     Route: 065

REACTIONS (2)
  - Acute myeloid leukaemia [Fatal]
  - Neutropenia [Unknown]
